FAERS Safety Report 20119565 (Version 2)
Quarter: 2021Q4

REPORT INFORMATION
  Report Type: Spontaneous
  Country: GB (occurrence: GB)
  Receive Date: 20211126
  Receipt Date: 20211206
  Transmission Date: 20220303
  Serious: Yes (Other)
  Sender: FDA-Public Use
  Company Number: GB-NOVARTISPH-NVSC2021GB260693

PATIENT
  Age: 55 Year
  Sex: Male

DRUGS (4)
  1. ADALIMUMAB [Suspect]
     Active Substance: ADALIMUMAB
     Indication: Psoriatic arthropathy
     Dosage: 40 MG, BIW
     Route: 058
     Dates: start: 20211014
  2. METHOTREXATE [Suspect]
     Active Substance: METHOTREXATE
     Indication: Product used for unknown indication
     Dosage: UNK
     Route: 065
  3. METHOTREXATE [Suspect]
     Active Substance: METHOTREXATE
     Dosage: UNKNOWN
     Route: 065
  4. CODEINE [Concomitant]
     Active Substance: CODEINE
     Indication: Product used for unknown indication
     Dosage: 60 MG
     Route: 065

REACTIONS (7)
  - Sleep paralysis [Unknown]
  - Fatigue [Unknown]
  - Disorientation [Unknown]
  - Ill-defined disorder [Unknown]
  - Pneumonia [Not Recovered/Not Resolved]
  - Hypoaesthesia [Unknown]
  - Ageusia [Unknown]
